FAERS Safety Report 8175009-5 (Version None)
Quarter: 2012Q1

REPORT INFORMATION
  Report Type: 
  Country: None (occurrence: None)
  Receive Date: 20120229
  Receipt Date: 20120221
  Transmission Date: 20120608
  Serious: Yes (Disabling)
  Sender: FDA-Public Use
  Company Number: FR-ASTRAZENECA-2012SE13033

PATIENT
  Sex: Male

DRUGS (2)
  1. PROPRANOLOL [Suspect]
     Indication: TACHYCARDIA
     Dates: end: 20110101
  2. ATENOLOL [Suspect]
     Route: 048

REACTIONS (5)
  - TINNITUS [None]
  - DRUG INTOLERANCE [None]
  - TACHYCARDIA [None]
  - INTERMITTENT CLAUDICATION [None]
  - DRUG INEFFECTIVE [None]
